FAERS Safety Report 6570228-3 (Version None)
Quarter: 2010Q1

REPORT INFORMATION
  Report Type: 
  Country: None (occurrence: None)
  Receive Date: 20100202
  Receipt Date: 20100202
  Transmission Date: 20100710
  Serious: No
  Sender: FDA-Public Use
  Company Number: None

PATIENT
  Age: 27 Year
  Sex: Female
  Weight: 53.0709 kg

DRUGS (2)
  1. ZICAM COLD REMEDY NASAL SWABS COLD REMEDY MATRIXX [Suspect]
     Indication: NASAL CONGESTION
     Dosage: 1 SWAB 1 TIME PER DAY NASAL
     Route: 045
     Dates: start: 20090604, end: 20090607
  2. ZICAM COLD REMEDY NASAL SWABS COLD REMEDY MATRIXX [Suspect]
     Indication: NASOPHARYNGITIS
     Dosage: 1 SWAB 1 TIME PER DAY NASAL
     Route: 045
     Dates: start: 20090604, end: 20090607

REACTIONS (2)
  - ANOSMIA [None]
  - HYPOGEUSIA [None]
